FAERS Safety Report 4642505-4 (Version None)
Quarter: 2005Q2

REPORT INFORMATION
  Report Type: 
  Country: None (occurrence: None)
  Receive Date: 20050422
  Receipt Date: 20050411
  Transmission Date: 20051028
  Serious: Yes (Hospitalization)
  Sender: FDA-Public Use
  Company Number: US-MERCK-0504USA01618

PATIENT
  Age: 41 Year
  Sex: Female

DRUGS (6)
  1. VIOXX [Suspect]
     Route: 048
  2. METHOTREXATE [Suspect]
     Indication: RHEUMATOID ARTHRITIS
     Route: 048
  3. LEVOFLOXACIN [Concomitant]
     Route: 065
  4. PIRBUTEROL ACETATE [Concomitant]
     Route: 055
  5. CYANOCOBALAMIN [Concomitant]
     Route: 065
  6. MEDROXYPROGESTERONE ACETATE [Concomitant]
     Route: 065

REACTIONS (3)
  - DRUG INTERACTION [None]
  - EPSTEIN-BARR VIRUS INFECTION [None]
  - LYMPHOPROLIFERATIVE DISORDER [None]
